FAERS Safety Report 8882658 (Version 1)
Quarter: 2012Q4

REPORT INFORMATION
  Report Type: Report from Study
  Country: US (occurrence: US)
  Receive Date: 20121102
  Receipt Date: 20121102
  Transmission Date: 20130627
  Serious: Yes (Hospitalization, Other)
  Sender: FDA-Public Use
  Company Number: PHHO2010US11565

PATIENT
  Age: 38 Year
  Sex: Female
  Weight: 141 kg

DRUGS (4)
  1. ALISKIREN [Suspect]
     Indication: CARDIAC FAILURE ACUTE
     Route: 048
     Dates: start: 20091114
  2. ANTIARRHYTHMICS, CLASS I AND III [Concomitant]
  3. BETA BLOCKING AGENTS [Concomitant]
  4. ANTIDEPRESSANTS [Concomitant]

REACTIONS (19)
  - Left ventricular hypertrophy [Unknown]
  - Left atrial dilatation [Unknown]
  - QRS axis abnormal [Unknown]
  - Electrocardiogram repolarisation abnormality [Unknown]
  - Ventricular tachycardia [Unknown]
  - Palpitations [Recovered/Resolved]
  - Chronic obstructive pulmonary disease [Recovered/Resolved]
  - Concomitant disease progression [Recovered/Resolved]
  - Fatigue [Recovered/Resolved]
  - Lethargy [Recovered/Resolved]
  - Chest discomfort [Recovered/Resolved]
  - Wheezing [Recovered/Resolved]
  - Anxiety [Recovered/Resolved]
  - Weight increased [Recovered/Resolved]
  - Dizziness [Recovered/Resolved]
  - Dyspnoea [Recovered/Resolved]
  - Chest pain [Recovered/Resolved]
  - Atrial fibrillation [Recovering/Resolving]
  - Device malfunction [Unknown]
